FAERS Safety Report 4546246-3 (Version None)
Quarter: 2005Q1

REPORT INFORMATION
  Report Type: 
  Country: None (occurrence: None)
  Receive Date: 20050103
  Receipt Date: 20041220
  Transmission Date: 20050727
  Serious: Yes (Hospitalization)
  Sender: FDA-Public Use
  Company Number: 04P-167-0284444-00

PATIENT
  Age: 72 Year
  Sex: Female

DRUGS (8)
  1. FERROGRAD (FERO-GRADUMET FILMTAB) (FERROUS SULFATE) (FERROUS SULFATE) [Suspect]
  2. FLUOXETINE [Suspect]
     Indication: DEPRESSION
     Dosage: 20 MG, 1 IN 1 D, PER ORAL
     Route: 048
     Dates: end: 20000930
  3. MADOPAR [Suspect]
  4. THYROXINE [Concomitant]
  5. CO-BENELDOPA [Concomitant]
  6. LEKOVIT CA [Concomitant]
  7. TEMAZEPAM [Concomitant]
  8. ACETAMINOPHEN [Concomitant]

REACTIONS (5)
  - FALL [None]
  - HYDROCEPHALUS [None]
  - HYPONATRAEMIA [None]
  - MOVEMENT DISORDER [None]
  - URINARY RETENTION [None]
